FAERS Safety Report 17934660 (Version 1)
Quarter: 2020Q2

REPORT INFORMATION
  Report Type: Spontaneous
  Country: DE (occurrence: DE)
  Receive Date: 20200624
  Receipt Date: 20200624
  Transmission Date: 20200714
  Serious: Yes (Life-Threatening, Other)
  Sender: FDA-Public Use
  Company Number: DE-009507513-2006DEU008102

PATIENT
  Age: 86 Year
  Sex: Male

DRUGS (3)
  1. JANUVIA [Suspect]
     Active Substance: SITAGLIPTIN PHOSPHATE
     Indication: TYPE 2 DIABETES MELLITUS
     Dosage: 100MG DAILY
     Route: 048
  2. METOPROLOL. [Concomitant]
     Active Substance: METOPROLOL
  3. ATORVASTATIN [Concomitant]
     Active Substance: ATORVASTATIN

REACTIONS (8)
  - Pancreatitis [Recovering/Resolving]
  - Adverse event [Unknown]
  - Contraindicated product administered [Unknown]
  - Abdominal pain [Unknown]
  - Fall [Unknown]
  - Arthralgia [Unknown]
  - Lipids increased [Unknown]
  - Dizziness [Unknown]

NARRATIVE: CASE EVENT DATE: 201910
